FAERS Safety Report 24571308 (Version 2)
Quarter: 2024Q4

REPORT INFORMATION
  Report Type: Spontaneous
  Country: JP (occurrence: JP)
  Receive Date: 20241101
  Receipt Date: 20241202
  Transmission Date: 20250115
  Serious: No
  Sender: ASTELLAS
  Company Number: JP-ASTELLAS-2024-AER-006752

PATIENT
  Age: 7 Decade
  Sex: Male

DRUGS (1)
  1. XTANDI [Suspect]
     Active Substance: ENZALUTAMIDE
     Indication: Prostate cancer
     Dosage: 2 TABLETS/DAY
     Route: 048

REACTIONS (2)
  - Vomiting [Unknown]
  - Product use complaint [Unknown]
